FAERS Safety Report 25547903 (Version 1)
Quarter: 2025Q3

REPORT INFORMATION
  Report Type: Spontaneous
  Country: CN (occurrence: CN)
  Receive Date: 20250714
  Receipt Date: 20250714
  Transmission Date: 20251021
  Serious: Yes (Disabling)
  Sender: ROCHE
  Company Number: CN-ROCHE-10000333645

PATIENT
  Age: 66 Year
  Sex: Male

DRUGS (2)
  1. ATEZOLIZUMAB [Suspect]
     Active Substance: ATEZOLIZUMAB
     Indication: Small cell lung cancer
     Route: 042
     Dates: start: 20250225, end: 20250528
  2. ISONIAZID [Concomitant]
     Active Substance: ISONIAZID
     Route: 048
     Dates: start: 20241226, end: 20250620

REACTIONS (1)
  - Liver injury [Recovering/Resolving]

NARRATIVE: CASE EVENT DATE: 20250621
